FAERS Safety Report 4282840-5 (Version None)
Quarter: 2004Q1

REPORT INFORMATION
  Report Type: 
  Country: None (occurrence: None)
  Receive Date: 20040130
  Receipt Date: 20030528
  Transmission Date: 20041129
  Serious: No
  Sender: FDA-Public Use
  Company Number: US-BRISTOL-MYERS SQUIBB COMPANY-12287512

PATIENT
  Age: 50 Year
  Sex: Female
  Weight: 54 kg

DRUGS (1)
  1. SERZONE [Suspect]
     Indication: DEPRESSION
     Dosage: STARTED AT ^LOW DOSE^, INCREASED UP TO 350 MG DAILY
     Route: 048
     Dates: start: 20000101

REACTIONS (2)
  - FIBROMYALGIA [None]
  - NEUROPATHY PERIPHERAL [None]
